FAERS Safety Report 16815031 (Version 5)
Quarter: 2023Q1

REPORT INFORMATION
  Report Type: Report from Study
  Country: CO (occurrence: CO)
  Receive Date: 20190917
  Receipt Date: 20230330
  Transmission Date: 20230418
  Serious: Yes (Hospitalization)
  Sender: FDA-Public Use
  Company Number: PHHY2019CO215302

PATIENT
  Sex: Male
  Weight: 84 kg

DRUGS (3)
  1. TASIGNA [Suspect]
     Active Substance: NILOTINIB
     Indication: Chronic myeloid leukaemia
     Dosage: 2 DF, BID (2 IN THE MORNING AND 2 AT NIGHT)
     Route: 048
     Dates: start: 20140822
  2. TASIGNA [Suspect]
     Active Substance: NILOTINIB
     Dosage: 300 MG, Q12H
     Route: 048
  3. TASIGNA [Suspect]
     Active Substance: NILOTINIB
     Dosage: 1 DF (150 MG), QD
     Route: 048

REACTIONS (8)
  - Dengue fever [Recovered/Resolved]
  - Cholelithiasis [Unknown]
  - Abdominal pain upper [Unknown]
  - Oropharyngeal discomfort [Unknown]
  - Pain in extremity [Unknown]
  - Spinal pain [Unknown]
  - Incorrect dose administered [Unknown]
  - Product availability issue [Unknown]
